FAERS Safety Report 19462223 (Version 3)
Quarter: 2022Q1

REPORT INFORMATION
  Report Type: Spontaneous
  Country: US (occurrence: US)
  Receive Date: 20210625
  Receipt Date: 20220328
  Transmission Date: 20220423
  Serious: No
  Sender: FDA-Public Use
  Company Number: US-PFIZER INC-2021557373

PATIENT
  Age: 66 Year
  Sex: Female
  Weight: 76.2 kg

DRUGS (2)
  1. ESTRING [Suspect]
     Active Substance: ESTRADIOL
     Indication: Hormone therapy
     Dosage: 2 MG, EVERY 3 MONTHS
     Route: 067
  2. ESTRING [Suspect]
     Active Substance: ESTRADIOL
     Indication: Vulvovaginal dryness

REACTIONS (5)
  - Drug ineffective [Unknown]
  - Hot flush [Unknown]
  - Cold sweat [Unknown]
  - Feeling of body temperature change [Unknown]
  - Insomnia [Unknown]

NARRATIVE: CASE EVENT DATE: 20210401
